FAERS Safety Report 9256392 (Version 1)
Quarter: 2013Q2

REPORT INFORMATION
  Report Type: Spontaneous
  Country: IT (occurrence: IT)
  Receive Date: 20130425
  Receipt Date: 20130425
  Transmission Date: 20140414
  Serious: Yes (Hospitalization)
  Sender: FDA-Public Use
  Company Number: IT-ROCHE-1218263

PATIENT
  Age: 98 Year
  Sex: Female

DRUGS (8)
  1. TORADOL [Suspect]
     Indication: PRODUCT USED FOR UNKNOWN INDICATION
     Dosage: 30 MG/ML
     Route: 042
     Dates: start: 20130110, end: 20130110
  2. CARDIRENE [Suspect]
     Indication: PRODUCT USED FOR UNKNOWN INDICATION
     Dosage: 160 MG
     Route: 048
     Dates: start: 20130110, end: 20130110
  3. VOLTAREN [Suspect]
     Indication: PRODUCT USED FOR UNKNOWN INDICATION
     Dosage: 75MG/ML
     Route: 030
     Dates: start: 20130110, end: 20130110
  4. TRIATEC [Concomitant]
  5. HUMALOG [Concomitant]
  6. LANTUS [Concomitant]
  7. TALOFEN [Concomitant]
  8. NORVASC [Concomitant]

REACTIONS (1)
  - Anaemia [Recovering/Resolving]
